FAERS Safety Report 9535077 (Version 1)
Quarter: 2013Q3

REPORT INFORMATION
  Report Type: Report from Study
  Country: AR (occurrence: AR)
  Receive Date: 20130918
  Receipt Date: 20130918
  Transmission Date: 20140515
  Serious: Yes (Other)
  Sender: FDA-Public Use
  Company Number: AR-ROCHE-1277649

PATIENT
  Sex: Female

DRUGS (1)
  1. RANIBIZUMAB [Suspect]
     Indication: MACULOPATHY
     Dosage: THREE APPLICATIONS IN TOTAL
     Route: 050
     Dates: start: 201306

REACTIONS (3)
  - Wrist fracture [Recovering/Resolving]
  - Fall [Unknown]
  - Pain [Recovering/Resolving]
